FAERS Safety Report 16915534 (Version 1)
Quarter: 2019Q4

REPORT INFORMATION
  Report Type: Spontaneous
  Country: US (occurrence: US)
  Receive Date: 20191014
  Receipt Date: 20191014
  Transmission Date: 20200122
  Serious: No
  Sender: FDA-Public Use
  Company Number: US-ASTRAZENECA-2019SF33352

PATIENT
  Sex: Male
  Weight: 106.6 kg

DRUGS (1)
  1. BYDUREON BCISE [Suspect]
     Active Substance: EXENATIDE
     Indication: GLYCOSYLATED HAEMOGLOBIN INCREASED
     Route: 058
     Dates: start: 201904

REACTIONS (6)
  - Dyspepsia [Recovered/Resolved]
  - Medication error [Unknown]
  - Injection site swelling [Unknown]
  - Injection site mass [Unknown]
  - Device issue [Unknown]
  - Injection site reaction [Not Recovered/Not Resolved]
